FAERS Safety Report 23880514 (Version 3)
Quarter: 2024Q2

REPORT INFORMATION
  Report Type: Spontaneous
  Country: JP (occurrence: JP)
  Receive Date: 20240521
  Receipt Date: 20240608
  Transmission Date: 20240716
  Serious: Yes (Hospitalization, Other)
  Sender: FDA-Public Use
  Company Number: JP-UCBJ-CD202404346UCBPHAPROD

PATIENT
  Age: 78 Year
  Sex: Female

DRUGS (19)
  1. LEVETIRACETAM [Suspect]
     Active Substance: LEVETIRACETAM
     Indication: Post stroke epilepsy
     Dosage: 1000 MILLIGRAM
     Route: 048
  2. LEVETIRACETAM [Suspect]
     Active Substance: LEVETIRACETAM
     Indication: Status epilepticus
     Dosage: 2000 MILLIGRAM
     Route: 048
  3. LEVETIRACETAM [Suspect]
     Active Substance: LEVETIRACETAM
     Indication: Off label use
     Dosage: 3000 MILLIGRAM
     Route: 048
  4. LEVETIRACETAM [Suspect]
     Active Substance: LEVETIRACETAM
     Dosage: 1500 MILLIGRAM, 2X/DAY (BID)
     Route: 048
  5. LEVETIRACETAM [Suspect]
     Active Substance: LEVETIRACETAM
     Indication: Post stroke epilepsy
     Dosage: 1500 MILLIGRAM, 2X/DAY (BID)
     Route: 041
  6. LEVETIRACETAM [Suspect]
     Active Substance: LEVETIRACETAM
     Indication: Status epilepticus
  7. LEVETIRACETAM [Suspect]
     Active Substance: LEVETIRACETAM
     Indication: Off label use
  8. VIMPAT [Suspect]
     Active Substance: LACOSAMIDE
     Indication: Post stroke epilepsy
     Dosage: 100 MILLIGRAM, 2X/DAY (BID)
     Route: 041
  9. VIMPAT [Suspect]
     Active Substance: LACOSAMIDE
     Indication: Off label use
  10. PROPOFOL [Suspect]
     Active Substance: PROPOFOL
     Indication: Sedative therapy
     Dosage: UNK
  11. PROPOFOL [Suspect]
     Active Substance: PROPOFOL
     Indication: Status epilepticus
  12. FYCOMPA [Concomitant]
     Active Substance: PERAMPANEL
     Indication: Post stroke epilepsy
     Dosage: 6 MILLIGRAM PER DAY
  13. MIDAZOLAM [Concomitant]
     Active Substance: MIDAZOLAM
     Indication: Sedative therapy
     Dosage: 6 MILLIGRAM
  14. MIDAZOLAM [Concomitant]
     Active Substance: MIDAZOLAM
     Indication: Post stroke epilepsy
  15. PERAMPANEL [Concomitant]
     Active Substance: PERAMPANEL
     Indication: Status epilepticus
     Dosage: 1 MILLIGRAM
  16. PERAMPANEL [Concomitant]
     Active Substance: PERAMPANEL
     Dosage: 2 MILLIGRAM
  17. PERAMPANEL [Concomitant]
     Active Substance: PERAMPANEL
     Dosage: 6 MILLIGRAM
  18. PERAMPANEL [Concomitant]
     Active Substance: PERAMPANEL
     Dosage: 3 MILLIGRAM
  19. FOSPHENYTOIN SODIUM [Concomitant]
     Active Substance: FOSPHENYTOIN SODIUM
     Indication: Product used for unknown indication
     Dosage: 250 MILLIGRAM

REACTIONS (15)
  - Altered state of consciousness [Not Recovered/Not Resolved]
  - Status epilepticus [Unknown]
  - Hallucination [Unknown]
  - Pyramidal tract syndrome [Unknown]
  - Locked-in syndrome [Unknown]
  - Cerebral atrophy [Unknown]
  - Tracheostomy [Unknown]
  - Abnormal behaviour [Unknown]
  - Gait disturbance [Unknown]
  - Cognitive disorder [Unknown]
  - Myoclonus [Unknown]
  - Treatment noncompliance [Unknown]
  - Off label use [Unknown]
  - Drug effective for unapproved indication [Unknown]
  - Drug ineffective [Unknown]
